FAERS Safety Report 14567549 (Version 1)
Quarter: 2018Q1

REPORT INFORMATION
  Report Type: Spontaneous
  Country: BR (occurrence: BR)
  Receive Date: 20180223
  Receipt Date: 20180223
  Transmission Date: 20180509
  Serious: Yes (Other)
  Sender: FDA-Public Use
  Company Number: BR-009507513-1802BRA009015

PATIENT
  Sex: Female
  Weight: 75.5 kg

DRUGS (2)
  1. JANUMET [Suspect]
     Active Substance: METFORMIN HYDROCHLORIDE\SITAGLIPTIN PHOSPHATE
     Dosage: 1 TABLET IN THE MORNING
     Route: 048
     Dates: start: 20180210
  2. JANUMET [Suspect]
     Active Substance: METFORMIN HYDROCHLORIDE\SITAGLIPTIN PHOSPHATE
     Indication: DIABETES MELLITUS
     Dosage: 1 TABLET IN THE MORNING AND 1 TABLET IN THE NIGHT
     Route: 048
     Dates: start: 2014

REACTIONS (4)
  - Product availability issue [Unknown]
  - Nervousness [Unknown]
  - Incorrect dose administered [Unknown]
  - Hyperglycaemia [Unknown]
